FAERS Safety Report 13099559 (Version 1)
Quarter: 2017Q1

REPORT INFORMATION
  Report Type: Spontaneous
  Country: US (occurrence: US)
  Receive Date: 20170109
  Receipt Date: 20170109
  Transmission Date: 20170428
  Serious: No
  Sender: FDA-Public Use
  Company Number: US-ELI_LILLY_AND_COMPANY-US201612010724

PATIENT
  Age: 68 Year
  Sex: Female
  Weight: 62.59 kg

DRUGS (11)
  1. BASAGLAR [Suspect]
     Active Substance: INSULIN GLARGINE
     Indication: TYPE 1 DIABETES MELLITUS
     Dosage: UNK, UNKNOWN
     Route: 065
     Dates: start: 20161229
  2. SINGULAIR [Concomitant]
     Active Substance: MONTELUKAST SODIUM
  3. CIPROFLOXACIN. [Concomitant]
     Active Substance: CIPROFLOXACIN
     Indication: CHILLS
     Dosage: UNK
  4. HUMAN INSULIN (RDNA) 25% LISPRO, 75% NPL [Suspect]
     Active Substance: INSULIN LISPRO
     Indication: TYPE 1 DIABETES MELLITUS
     Dosage: 35 U, BID
     Route: 065
     Dates: start: 2012
  5. MUCINEX [Concomitant]
     Active Substance: GUAIFENESIN
  6. NOVOLOG [Concomitant]
     Active Substance: INSULIN ASPART
     Dosage: UNK
     Dates: start: 20161228
  7. FLUTICASONE. [Concomitant]
     Active Substance: FLUTICASONE
  8. SALINE                             /00075401/ [Concomitant]
     Active Substance: SODIUM CHLORIDE
  9. HUMALOG [Suspect]
     Active Substance: INSULIN LISPRO
     Indication: TYPE 1 DIABETES MELLITUS
     Dosage: UNK, PRN
     Route: 065
  10. HUMAN INSULIN (RDNA) 25% LISPRO, 75% NPL [Suspect]
     Active Substance: INSULIN LISPRO
     Dosage: 35 U, BID
     Route: 065
     Dates: end: 20161227
  11. MAPAP [Concomitant]
     Active Substance: ACETAMINOPHEN
     Indication: CHILLS

REACTIONS (10)
  - Dry throat [Not Recovered/Not Resolved]
  - Allergy to chemicals [Unknown]
  - Ear pain [Unknown]
  - Blood glucose decreased [Not Recovered/Not Resolved]
  - Limb injury [Unknown]
  - Weight decreased [Unknown]
  - Malaise [Unknown]
  - Mobility decreased [Unknown]
  - Sinusitis [Not Recovered/Not Resolved]
  - Fall [Unknown]

NARRATIVE: CASE EVENT DATE: 201610
